FAERS Safety Report 16889971 (Version 1)
Quarter: 2019Q4

REPORT INFORMATION
  Report Type: Report from Study
  Country: FR (occurrence: FR)
  Receive Date: 20191007
  Receipt Date: 20191007
  Transmission Date: 20200122
  Serious: Yes (Other)
  Sender: FDA-Public Use
  Company Number: FR-BRISTOL-MYERS SQUIBB COMPANY-BMS-2019-093614

PATIENT
  Age: 47 Year
  Sex: Male

DRUGS (3)
  1. BELATACEPT [Suspect]
     Active Substance: BELATACEPT
     Indication: PROPHYLAXIS
     Dosage: 5 MILLIGRAM/KILOGRAM
     Route: 065
  2. MYCOPHENOLATE MOFETIL. [Suspect]
     Active Substance: MYCOPHENOLATE MOFETIL
     Indication: PROPHYLAXIS
     Dosage: 500 MILLIGRAM, QD
     Route: 065
  3. PREDNISONE. [Suspect]
     Active Substance: PREDNISONE
     Indication: PROPHYLAXIS
     Dosage: 10 MILLIGRAM, QD
     Route: 065

REACTIONS (3)
  - Hepatitis B reactivation [Unknown]
  - Epstein-Barr virus infection [Unknown]
  - Hepatitis acute [Unknown]
